FAERS Safety Report 8516326-6 (Version None)
Quarter: 2012Q3

REPORT INFORMATION
  Report Type: 
  Country: None (occurrence: None)
  Receive Date: 20120718
  Receipt Date: 20120713
  Transmission Date: 20120928
  Serious: Yes (Hospitalization, Other)
  Sender: FDA-Public Use
  Company Number: US-AMGEN-USASP2012043729

PATIENT
  Age: 65 Year
  Sex: Female

DRUGS (1)
  1. ENBREL [Suspect]
     Indication: PSORIATIC ARTHROPATHY
     Dosage: 25 MG, QWK
     Dates: start: 20120105

REACTIONS (6)
  - BLINDNESS [None]
  - BACTERIAL INFECTION [None]
  - COMA [None]
  - PYREXIA [None]
  - VIRAL INFECTION [None]
  - DELIRIUM [None]
